FAERS Safety Report 9630901 (Version 3)
Quarter: 2014Q1

REPORT INFORMATION
  Report Type: Spontaneous
  Country: CO (occurrence: CO)
  Receive Date: 20131018
  Receipt Date: 20140203
  Transmission Date: 20141002
  Serious: Yes (Death, Hospitalization)
  Sender: FDA-Public Use
  Company Number: CO-PFIZER INC-2013297305

PATIENT
  Age: 55 Year
  Sex: Male

DRUGS (5)
  1. SUTENT [Suspect]
     Indication: RENAL CANCER
     Dosage: 50 MG, 1X/DAY
     Route: 048
     Dates: start: 201308
  2. SUTENT [Suspect]
     Dosage: 50 MG, 1X/DAY
     Route: 048
     Dates: start: 20130924, end: 20131112
  3. PREGABALIN [Concomitant]
     Indication: CANCER PAIN
     Dosage: 75 MG, 1X/DAY
     Route: 048
     Dates: start: 201308
  4. MORPHINE [Concomitant]
     Indication: PAIN
     Dosage: 7 GTT, EVERY 4 HRS (7 DROPS EACH 4 HOURS)
     Route: 048
  5. CLONAZEPAM [Concomitant]
     Indication: INSOMNIA
     Dosage: UNK

REACTIONS (12)
  - Disease progression [Fatal]
  - Renal cancer [Fatal]
  - Cancer pain [Not Recovered/Not Resolved]
  - Loss of consciousness [Not Recovered/Not Resolved]
  - Dehydration [Not Recovered/Not Resolved]
  - Speech disorder [Not Recovered/Not Resolved]
  - Vomiting [Not Recovered/Not Resolved]
  - Oedema peripheral [Recovered/Resolved]
  - Altered state of consciousness [Recovered/Resolved]
  - Dyspnoea [Recovered/Resolved]
  - Osteoarthritis [Not Recovered/Not Resolved]
  - Pain [Recovered/Resolved]
